FAERS Safety Report 9354974 (Version 1)
Quarter: 2013Q2

REPORT INFORMATION
  Report Type: Spontaneous
  Country: US (occurrence: None)
  Receive Date: 20130618
  Receipt Date: 20130618
  Transmission Date: 20140414
  Serious: Yes (Hospitalization)
  Sender: FDA-Public Use
  Company Number: None

PATIENT
  Age: 53 Year
  Sex: Female
  Weight: 49.9 kg

DRUGS (3)
  1. ADDERALL [Suspect]
     Indication: ATTENTION DEFICIT/HYPERACTIVITY DISORDER
     Dosage: 5MG?1?1?MOUTH
     Route: 048
     Dates: start: 20121029, end: 20121221
  2. ONCE A DAY MULTI VITAMIN [Concomitant]
  3. BABY ASPIRIN [Concomitant]

REACTIONS (2)
  - Transient ischaemic attack [None]
  - Heart rate irregular [None]
